FAERS Safety Report 13413321 (Version 3)
Quarter: 2017Q2

REPORT INFORMATION
  Report Type: Spontaneous
  Country: FR (occurrence: FR)
  Receive Date: 20170407
  Receipt Date: 20170522
  Transmission Date: 20170830
  Serious: Yes (Other)
  Sender: FDA-Public Use
  Company Number: FR-TEVA-758122ROM

PATIENT
  Age: 9 Year
  Sex: Male

DRUGS (4)
  1. METHOTREXATE. [Concomitant]
     Active Substance: METHOTREXATE
     Indication: PSORIASIS
     Route: 065
  2. ACITRETIN UNK [Suspect]
     Active Substance: ACITRETIN
     Indication: PSORIASIS
     Dosage: .5 MG/KG DAILY;
     Route: 065
  3. CLOBETASOL CREAM [Interacting]
     Active Substance: CLOBETASOL
     Indication: PSORIASIS
     Dosage: 500 MG/G, NIGHT OCCLUSION OF THE PALMS AT A RATE OF 10 G EVERY 2 DAYS
     Route: 061
  4. BETAMETHASONE DIPROPIONATE W/CALCIPOTRIOL [Concomitant]
     Indication: PSORIASIS
     Route: 065

REACTIONS (3)
  - Off label use [Unknown]
  - Cushing^s syndrome [Recovered/Resolved]
  - Drug interaction [Recovered/Resolved]
